FAERS Safety Report 4346630-7 (Version None)
Quarter: 2004Q1

REPORT INFORMATION
  Report Type: 
  Country: None (occurrence: None)
  Receive Date: 20040325
  Receipt Date: 20040217
  Transmission Date: 20041129
  Serious: No
  Sender: FDA-Public Use
  Company Number: USA031255255

PATIENT
  Age: 80 Year
  Sex: Female

DRUGS (3)
  1. FORTEO [Suspect]
     Indication: OSTEOPOROSIS
     Dates: start: 20031128
  2. THYROID TAB [Concomitant]
  3. CALCIUM [Concomitant]

REACTIONS (7)
  - CHEST WALL PAIN [None]
  - COUGH [None]
  - INJECTION SITE HAEMORRHAGE [None]
  - MUSCLE CRAMP [None]
  - NASOPHARYNGITIS [None]
  - SKIN DISCOLOURATION [None]
  - TREMOR [None]
